FAERS Safety Report 13212290 (Version 3)
Quarter: 2020Q1

REPORT INFORMATION
  Report Type: Report from Study
  Country: US (occurrence: US)
  Receive Date: 20170210
  Receipt Date: 20200327
  Transmission Date: 20200409
  Serious: Yes (Hospitalization, Other)
  Sender: FDA-Public Use
  Company Number: US-009507513-1701USA012923

PATIENT
  Age: 82 Year
  Sex: Male
  Weight: 74.38 kg

DRUGS (24)
  1. OMEGA-3 MARINE TRIGLYCERIDES [Concomitant]
     Active Substance: FISH OIL
     Dosage: UNK
  2. CALCIUM (UNSPECIFIED) [Concomitant]
     Active Substance: CALCIUM
  3. POTASSIUM CHLORIDE. [Concomitant]
     Active Substance: POTASSIUM CHLORIDE
  4. FLORANEX [Concomitant]
     Active Substance: LACTOBACILLUS ACIDOPHILUS\LACTOBACILLUS DELBRUECKII SUBSP. BULGARICUS
     Dosage: 100 MILLION CELL ORAL GRANULETES IN PACKET
     Route: 048
  5. GLYCOLAX [Concomitant]
     Active Substance: POLYETHYLENE GLYCOL 3350
     Route: 048
  6. ACETAMINOPHEN (+) HYDROCODONE BITARTRATE [Concomitant]
     Active Substance: ACETAMINOPHEN\HYDROCODONE BITARTRATE
     Indication: PAIN
  7. CLINDAMYCIN HYDROCHLORIDE. [Concomitant]
     Active Substance: CLINDAMYCIN HYDROCHLORIDE
  8. HYDROCORTISONE. [Concomitant]
     Active Substance: HYDROCORTISONE
     Dosage: 5 MILLIGRAM, QD
     Route: 048
  9. COLACE [Concomitant]
     Active Substance: DOCUSATE SODIUM
  10. TYLENOL EXTRA STRENGTH [Concomitant]
     Active Substance: ACETAMINOPHEN
  11. GARLIC. [Concomitant]
     Active Substance: GARLIC
     Route: 048
  12. OMEPRAZOLE. [Concomitant]
     Active Substance: OMEPRAZOLE
  13. CYANOCOBALAMIN. [Concomitant]
     Active Substance: CYANOCOBALAMIN
  14. PEMBROLIZUMAB. [Suspect]
     Active Substance: PEMBROLIZUMAB
     Indication: METASTATIC MALIGNANT MELANOMA
     Dosage: 162 MILLIGRAM, Q3W
     Route: 042
     Dates: start: 201501, end: 202002
  15. OXCARBAZEPINE. [Suspect]
     Active Substance: OXCARBAZEPINE
     Indication: PARAESTHESIA
     Dosage: 300 MG, UNK
  16. OXCARBAZEPINE. [Suspect]
     Active Substance: OXCARBAZEPINE
     Indication: PAIN IN EXTREMITY
  17. ACETAMINOPHEN (+) HYDROCODONE BITARTRATE [Concomitant]
     Active Substance: ACETAMINOPHEN\HYDROCODONE BITARTRATE
     Indication: SLEEP DISORDER
  18. PREDNISONE. [Concomitant]
     Active Substance: PREDNISONE
     Dosage: 10MG ONCE PER DAY
  19. ENOXAPARIN SODIUM. [Concomitant]
     Active Substance: ENOXAPARIN SODIUM
     Dosage: STRENGTH:  120 MG/0.8 ML
     Route: 058
  20. OXCARBAZEPINE. [Suspect]
     Active Substance: OXCARBAZEPINE
     Indication: HYPOAESTHESIA
  21. TRAMADOL HYDROCHLORIDE. [Concomitant]
     Active Substance: TRAMADOL HYDROCHLORIDE
     Indication: CANCER PAIN
     Dosage: UNK
     Route: 048
  22. PROCHLORPERAZINE MALEATE. [Concomitant]
     Active Substance: PROCHLORPERAZINE MALEATE
     Route: 048
  23. XANAX [Concomitant]
     Active Substance: ALPRAZOLAM
     Route: 048
  24. LOVENOX [Concomitant]
     Active Substance: ENOXAPARIN SODIUM
     Indication: ANTICOAGULANT THERAPY

REACTIONS (125)
  - Irritability [Recovered/Resolved]
  - Malignant neoplasm progression [Not Recovered/Not Resolved]
  - Neuropathy peripheral [Unknown]
  - Pruritus [Recovered/Resolved]
  - Upper respiratory tract infection [Unknown]
  - Road traffic accident [Unknown]
  - Iron deficiency [Unknown]
  - Pruritus [Recovered/Resolved]
  - Fatigue [Unknown]
  - Constipation [Unknown]
  - Fatigue [Recovered/Resolved]
  - Vitiligo [Not Recovered/Not Resolved]
  - Pruritus [Unknown]
  - Adrenal mass [Unknown]
  - Intestinal operation [Unknown]
  - Irregular sleep wake rhythm disorder [Unknown]
  - Renal embolism [Unknown]
  - Screaming [Recovered/Resolved]
  - Renal disorder [Unknown]
  - Constipation [Recovered/Resolved]
  - Lung disorder [Unknown]
  - Oral discomfort [Not Recovered/Not Resolved]
  - Chest pain [Not Recovered/Not Resolved]
  - Stress [Not Recovered/Not Resolved]
  - Contusion [Recovering/Resolving]
  - Malaise [Recovering/Resolving]
  - Insomnia [Unknown]
  - Asthenia [Not Recovered/Not Resolved]
  - Cough [Recovered/Resolved]
  - Cough [Recovered/Resolved]
  - Pain [Unknown]
  - Anaemia [Unknown]
  - Chronic sinusitis [Unknown]
  - Asthenia [Unknown]
  - Dizziness [Unknown]
  - Pyrexia [Recovered/Resolved]
  - Drug intolerance [Unknown]
  - Asthma [Recovered/Resolved]
  - Influenza [Unknown]
  - Musculoskeletal pain [Recovered/Resolved]
  - Joint swelling [Unknown]
  - Arthralgia [Unknown]
  - Dizziness [Unknown]
  - Dyspnoea [Unknown]
  - Venous occlusion [Unknown]
  - Weight decreased [Unknown]
  - Product dose omission [Unknown]
  - Pruritus [Unknown]
  - Skin haemorrhage [Recovered/Resolved]
  - Internal haemorrhage [Unknown]
  - Scratch [Recovered/Resolved]
  - Intestinal obstruction [Unknown]
  - Movement disorder [Recovered/Resolved]
  - Renal neoplasm [Not Recovered/Not Resolved]
  - Loose tooth [Recovered/Resolved]
  - Anxiety [Unknown]
  - Paraesthesia [Recovered/Resolved]
  - Pain [Unknown]
  - Pyrexia [Recovered/Resolved]
  - Back pain [Recovered/Resolved]
  - Gastritis [Recovered/Resolved]
  - White blood cell count decreased [Not Recovered/Not Resolved]
  - Pain in extremity [Recovered/Resolved]
  - Erythema [Recovered/Resolved]
  - Renal vein thrombosis [Unknown]
  - Localised infection [Unknown]
  - Movement disorder [Unknown]
  - Feeling cold [Recovered/Resolved]
  - Malaise [Recovered/Resolved]
  - Abdominal pain upper [Unknown]
  - Fatigue [Unknown]
  - Back pain [Recovered/Resolved]
  - Gastrooesophageal reflux disease [Unknown]
  - Abdominal discomfort [Recovered/Resolved]
  - White matter lesion [Unknown]
  - Peripheral swelling [Unknown]
  - Toothache [Not Recovered/Not Resolved]
  - Oral pain [Not Recovered/Not Resolved]
  - Procedural pain [Unknown]
  - Adrenalectomy [Recovering/Resolving]
  - Blood test abnormal [Unknown]
  - Pruritus [Recovered/Resolved]
  - Upper respiratory tract infection [Recovered/Resolved]
  - Lethargy [Unknown]
  - Hypotension [Unknown]
  - Inappropriate schedule of product administration [Unknown]
  - Infection [Unknown]
  - Paraesthesia [Not Recovered/Not Resolved]
  - Malignant neoplasm progression [Unknown]
  - Intestinal obstruction [Unknown]
  - Nausea [Recovered/Resolved]
  - Haemorrhage [Unknown]
  - Pruritus [Recovered/Resolved]
  - Surgery [Unknown]
  - Adverse event [Unknown]
  - Mass [Unknown]
  - Somnolence [Unknown]
  - Malaise [Recovered/Resolved]
  - Constipation [Unknown]
  - Musculoskeletal discomfort [Unknown]
  - Photosensitivity reaction [Unknown]
  - Hypoaesthesia [Unknown]
  - Pyrexia [Unknown]
  - Cholecystectomy [Recovering/Resolving]
  - Intervertebral disc degeneration [Unknown]
  - Adrenomegaly [Unknown]
  - Pulmonary mass [Unknown]
  - Drug ineffective [Unknown]
  - Tooth abscess [Unknown]
  - Abdominal pain [Unknown]
  - Haemorrhage [Unknown]
  - Cerebral atrophy [Unknown]
  - Adrenal insufficiency [Recovered/Resolved]
  - Pyrexia [Recovered/Resolved]
  - Neck pain [Recovered/Resolved]
  - Oropharyngeal discomfort [Recovering/Resolving]
  - Heart rate increased [Unknown]
  - Malaise [Unknown]
  - Pyrexia [Recovered/Resolved]
  - Swelling [Unknown]
  - Rash [Not Recovered/Not Resolved]
  - Weight decreased [Recovering/Resolving]
  - Decreased appetite [Unknown]
  - Oral disorder [Unknown]
  - Myalgia [Unknown]

NARRATIVE: CASE EVENT DATE: 2016
